FAERS Safety Report 7707020-X (Version None)
Quarter: 2011Q3

REPORT INFORMATION
  Report Type: 
  Country: None (occurrence: None)
  Receive Date: 20110824
  Receipt Date: 20110815
  Transmission Date: 20111222
  Serious: No
  Sender: FDA-Public Use
  Company Number: US-PFIZER INC-2011190713

PATIENT
  Sex: Female

DRUGS (3)
  1. ZOLOFT [Suspect]
     Indication: ANXIETY
     Dosage: 50 MG, DAILY
     Route: 048
     Dates: start: 20110101
  2. ZOLOFT [Suspect]
     Dosage: SPLIT 50 MG DAILY
  3. VITAMIN TAB [Concomitant]
     Dosage: UNK

REACTIONS (2)
  - APATHY [None]
  - WRONG TECHNIQUE IN DRUG USAGE PROCESS [None]
